FAERS Safety Report 23338588 (Version 2)
Quarter: 2024Q1

REPORT INFORMATION
  Report Type: Other
  Country: MX (occurrence: None)
  Receive Date: 20231226
  Receipt Date: 20240105
  Transmission Date: 20240409
  Serious: Yes (Other)
  Sender: FDA-Public Use
  Company Number: MX-ROCHE-3480761

PATIENT
  Age: 64 Year
  Sex: Male

DRUGS (1)
  1. SATRALIZUMAB [Suspect]
     Active Substance: SATRALIZUMAB
     Indication: Neuromyelitis optica spectrum disorder
     Route: 058
     Dates: start: 20230801

REACTIONS (6)
  - Thrombosis [Unknown]
  - Bursitis [Not Recovered/Not Resolved]
  - Sensory disturbance [Not Recovered/Not Resolved]
  - Balance disorder [Recovering/Resolving]
  - Mobility decreased [Not Recovered/Not Resolved]
  - Sensory disturbance [Not Recovered/Not Resolved]

NARRATIVE: CASE EVENT DATE: 20230801
